FAERS Safety Report 6243114-6 (Version None)
Quarter: 2009Q2

REPORT INFORMATION
  Report Type: 
  Country: None (occurrence: None)
  Receive Date: 20090622
  Receipt Date: 20090622
  Transmission Date: 20091009
  Serious: No
  Sender: FDA-Public Use
  Company Number: None

PATIENT
  Sex: Male
  Weight: 86.1834 kg

DRUGS (1)
  1. ZICAM EXTREME CONGESTION RELIEF MATRIXX INITIATIVES, INC. [Suspect]
     Indication: NASOPHARYNGITIS
     Dosage: 0.50 FL. OZ /15ML NASAL
     Route: 045
     Dates: start: 20090601, end: 20090612

REACTIONS (2)
  - AGEUSIA [None]
  - ANOSMIA [None]
